FAERS Safety Report 16030544 (Version 3)
Quarter: 2019Q2

REPORT INFORMATION
  Report Type: Report from Study
  Country: ZA (occurrence: ZA)
  Receive Date: 20190304
  Receipt Date: 20190627
  Transmission Date: 20190711
  Serious: Yes (Hospitalization, Other)
  Sender: FDA-Public Use
  Company Number: ZA-SA-2019SA053992

PATIENT
  Age: 52 Year
  Sex: Male

DRUGS (6)
  1. INSULIN GLULISINE [Suspect]
     Active Substance: INSULIN GLULISINE
     Dosage: 3 ML, BS -2 UNITES
     Dates: start: 20190211
  2. OPTISULIN [INSULIN GLARGINE] [Suspect]
     Active Substance: INSULIN GLARGINE
     Dosage: 28 U, HS
     Dates: start: 20170101
  3. MYLAN OXYBUTYNIN [Concomitant]
     Active Substance: OXYBUTYNIN
     Dosage: UNK
     Dates: start: 20150101
  4. GLUCOPHAGE [Concomitant]
     Active Substance: METFORMIN HYDROCHLORIDE
     Dosage: 1000 MG, QD
     Dates: start: 20120101
  5. VENLOR [Concomitant]
     Active Substance: VENLAFAXINE HYDROCHLORIDE
     Dosage: 150 MG, HS
     Dates: start: 20100101
  6. VASTOR [ATORVASTATIN] [Concomitant]
     Dosage: 20 MG, HS
     Dates: start: 20120101

REACTIONS (8)
  - Nephrolithiasis [Recovered/Resolved]
  - Paraesthesia [Not Recovered/Not Resolved]
  - Intentional product misuse [Unknown]
  - Burning sensation [Not Recovered/Not Resolved]
  - Blood glucose fluctuation [Recovered/Resolved]
  - Headache [Not Recovered/Not Resolved]
  - Glycosylated haemoglobin increased [Unknown]
  - Pain [Recovered/Resolved]

NARRATIVE: CASE EVENT DATE: 20190216
